FAERS Safety Report 9472834 (Version 4)
Quarter: 2014Q2

REPORT INFORMATION
  Report Type: Spontaneous
  Country: US (occurrence: US)
  Receive Date: 20130823
  Receipt Date: 20140509
  Transmission Date: 20141212
  Serious: Yes (Other)
  Sender: FDA-Public Use
  Company Number: US-PFIZER INC-2013241294

PATIENT
  Age: 58 Year
  Sex: Female

DRUGS (6)
  1. SUTENT [Suspect]
     Dosage: 50 MG, (ONCE DAILY 4 WKS ON 2 OFF ) CYCLIC
     Route: 048
     Dates: start: 20130423
  2. PREDNISONE [Concomitant]
  3. FLUDROCORTISONE [Concomitant]
  4. SERTRALINE [Concomitant]
  5. DHEA [Concomitant]
  6. ALLEGRA [Concomitant]

REACTIONS (9)
  - Urinary tract infection [Recovered/Resolved]
  - Oral pain [Recovered/Resolved]
  - Nasal discomfort [Recovered/Resolved]
  - Nausea [Not Recovered/Not Resolved]
  - Headache [Unknown]
  - Vomiting [Recovered/Resolved]
  - Eyelid margin crusting [Recovered/Resolved]
  - Influenza [Recovered/Resolved]
  - Dyspepsia [Unknown]
